FAERS Safety Report 4366708-1 (Version None)
Quarter: 2004Q2

REPORT INFORMATION
  Report Type: 
  Country: None (occurrence: None)
  Receive Date: 20040527
  Receipt Date: 20040108
  Transmission Date: 20050107
  Serious: Yes (Hospitalization)
  Sender: FDA-Public Use
  Company Number: GB-MERCK-0401GBR00064

PATIENT
  Age: 68 Year
  Sex: Female
  Weight: 50 kg

DRUGS (3)
  1. CORTICOSTEROIDS (UNSPECIFIED) [Concomitant]
     Indication: ASTHMA
     Route: 065
  2. CORTICOSTEROIDS (UNSPECIFIED) [Concomitant]
     Indication: CHRONIC OBSTRUCTIVE AIRWAYS DISEASE
     Route: 065
  3. SINGULAIR [Suspect]
     Indication: ASTHMA
     Route: 048
     Dates: end: 20030814

REACTIONS (1)
  - PERITONITIS BACTERIAL [None]
